FAERS Safety Report 19487137 (Version 2)
Quarter: 2021Q3

REPORT INFORMATION
  Report Type: Spontaneous
  Country: US (occurrence: US)
  Receive Date: 20210702
  Receipt Date: 20210706
  Transmission Date: 20211014
  Serious: Yes (Hospitalization)
  Sender: FDA-Public Use
  Company Number: US-TEVA-2021-US-1928107

PATIENT
  Age: 34 Year
  Sex: Male

DRUGS (5)
  1. AJOVY [Suspect]
     Active Substance: FREMANEZUMAB-VFRM
     Dosage: QUARTERLY DOSING WITH AJOVY, 225 MG / 1.5 ML
     Route: 065
  2. AJOVY [Suspect]
     Active Substance: FREMANEZUMAB-VFRM
     Dosage: STRENGTH: 225 MG / 1.5 ML
     Route: 065
  3. BACLOFEN. [Concomitant]
     Active Substance: BACLOFEN
  4. AJOVY [Suspect]
     Active Substance: FREMANEZUMAB-VFRM
     Indication: MIGRAINE
     Dosage: QUARTERLY DOSING WITH AJOVY, 225 MG / 1.5 ML
     Route: 065
  5. WELLBUTRIN [Concomitant]
     Active Substance: BUPROPION HYDROCHLORIDE

REACTIONS (8)
  - Injection site swelling [Unknown]
  - Injection site bruising [Unknown]
  - Wrong technique in product usage process [Unknown]
  - Drug dose omission by device [Unknown]
  - Hospitalisation [Unknown]
  - Needle issue [Unknown]
  - Injection site haemorrhage [Unknown]
  - Therapeutic product effect decreased [Unknown]
